FAERS Safety Report 9477050 (Version 1)
Quarter: 2013Q3

REPORT INFORMATION
  Report Type: Spontaneous
  Country: US (occurrence: US)
  Receive Date: 20130826
  Receipt Date: 20130826
  Transmission Date: 20140515
  Serious: Yes (Hospitalization)
  Sender: FDA-Public Use
  Company Number: US-BAYER-2013-100662

PATIENT
  Age: 27 Year
  Sex: Female

DRUGS (6)
  1. YASMIN [Suspect]
  2. ZOLOFT [Concomitant]
  3. ABILIFY [Concomitant]
  4. PERCOCET [Concomitant]
  5. PREDNISONE [Concomitant]
  6. VICODIN [Concomitant]

REACTIONS (5)
  - Deep vein thrombosis [Recovered/Resolved]
  - Pulmonary embolism [None]
  - Pelvic venous thrombosis [Recovering/Resolving]
  - Vena cava thrombosis [None]
  - Thrombophlebitis superficial [Recovered/Resolved]
